FAERS Safety Report 6234444-2 (Version None)
Quarter: 2009Q2

REPORT INFORMATION
  Report Type: 
  Country: None (occurrence: None)
  Receive Date: 20090618
  Receipt Date: 20090612
  Transmission Date: 20091009
  Serious: Yes (Other)
  Sender: FDA-Public Use
  Company Number: US-ROCHE-638032

PATIENT
  Sex: Male

DRUGS (7)
  1. KLONOPIN [Suspect]
     Indication: DEPRESSION
     Route: 065
  2. REBIF [Suspect]
     Indication: OFF LABEL USE
     Route: 058
     Dates: start: 20081001
  3. REMERON [Suspect]
     Indication: DEPRESSION
     Route: 065
  4. REMERON [Suspect]
     Dosage: DOSE INCREASED.
     Route: 065
  5. ZOLOFT [Suspect]
     Indication: DRUG USE FOR UNKNOWN INDICATION
     Route: 065
  6. CELEXA [Concomitant]
     Indication: DEPRESSION
  7. SEROQUEL [Concomitant]
     Indication: DEPRESSION

REACTIONS (7)
  - ANXIETY [None]
  - DEPRESSION [None]
  - HEMIPARESIS [None]
  - HYPOAESTHESIA [None]
  - INSOMNIA [None]
  - INTENTIONAL OVERDOSE [None]
  - INTENTIONAL SELF-INJURY [None]
